FAERS Safety Report 23512583 (Version 2)
Quarter: 2024Q1

REPORT INFORMATION
  Report Type: Spontaneous
  Country: US (occurrence: US)
  Receive Date: 20240212
  Receipt Date: 20240217
  Transmission Date: 20240410
  Serious: No
  Sender: FDA-Public Use
  Company Number: US-SA-SAC20240206000180

PATIENT
  Age: 85 Year
  Sex: Male
  Weight: 151 kg

DRUGS (1)
  1. DUPIXENT [Suspect]
     Active Substance: DUPILUMAB
     Indication: Dermatitis atopic
     Dosage: 300 MG, QOW
     Route: 058
     Dates: start: 20240125

REACTIONS (8)
  - Ocular discomfort [Unknown]
  - Eyelid irritation [Not Recovered/Not Resolved]
  - Swelling of eyelid [Unknown]
  - Fatigue [Unknown]
  - Insomnia [Unknown]
  - Drug hypersensitivity [Unknown]
  - Accidental exposure to product [Unknown]
  - Exposure via skin contact [Unknown]

NARRATIVE: CASE EVENT DATE: 20240101
